FAERS Safety Report 8790644 (Version 1)
Quarter: 2012Q4

REPORT INFORMATION
  Report Type: Spontaneous
  Country: US (occurrence: None)
  Receive Date: 20120912
  Receipt Date: 20120912
  Transmission Date: 20130627
  Serious: No
  Sender: FDA-Public Use
  Company Number: None

PATIENT
  Age: 69 Year
  Sex: Male
  Weight: 81.65 kg

DRUGS (3)
  1. METOPROLOL TARTRATE [Suspect]
     Indication: BLOOD PRESSURE DECREASED
     Dates: start: 20120515, end: 20120821
  2. METOPROLOL TARTRATE [Suspect]
     Indication: BLOOD PRESSURE DECREASED
  3. HYDROCHLOROTHIAZIDE [Suspect]
     Dates: start: 20120529, end: 20120805

REACTIONS (2)
  - Fall [None]
  - Balance disorder [None]
